FAERS Safety Report 6707385-1 (Version None)
Quarter: 2010Q2

REPORT INFORMATION
  Report Type: 
  Country: None (occurrence: None)
  Receive Date: 20100503
  Receipt Date: 20090728
  Transmission Date: 20101027
  Serious: No
  Sender: FDA-Public Use
  Company Number: US-ASTRAZENECA-2009SE06221

PATIENT
  Age: 730 Month
  Sex: Male
  Weight: 68 kg

DRUGS (2)
  1. NEXIUM [Suspect]
     Indication: GASTROOESOPHAGEAL REFLUX DISEASE
     Route: 048
     Dates: start: 20090401, end: 20090101
  2. NEXIUM [Suspect]
     Route: 048
     Dates: start: 20090101

REACTIONS (2)
  - MYOTONIA [None]
  - PAIN IN EXTREMITY [None]
